FAERS Safety Report 4404166-9 (Version None)
Quarter: 2004Q3

REPORT INFORMATION
  Report Type: 
  Country: None (occurrence: None)
  Receive Date: 20040719
  Receipt Date: 20040706
  Transmission Date: 20050211
  Serious: Yes (Death, Life-Threatening)
  Sender: FDA-Public Use
  Company Number: GB-JNJFOC-20040701124

PATIENT
  Age: 50 Year
  Sex: Female

DRUGS (4)
  1. REMICADE [Suspect]
     Indication: RHEUMATOID ARTHRITIS
     Dosage: 200 MG, INTRAVENOUS
     Route: 042
     Dates: start: 20020520
  2. METHOTREXATE [Concomitant]
  3. CELEBREXA (CELEBREXA) [Concomitant]
  4. CO-PROXAMOL (APOREX) [Concomitant]

REACTIONS (1)
  - METASTATIC NEOPLASM [None]
